FAERS Safety Report 9257909 (Version 1)
Quarter: 2013Q2

REPORT INFORMATION
  Report Type: Spontaneous
  Country: US (occurrence: US)
  Receive Date: 20130426
  Receipt Date: 20130426
  Transmission Date: 20140414
  Serious: No
  Sender: FDA-Public Use
  Company Number: US-GLAXOSMITHKLINE-A0975144A

PATIENT
  Age: 27 Year
  Sex: Female

DRUGS (3)
  1. ZOFRAN [Suspect]
     Indication: VOMITING
     Dosage: 8MG FOUR TIMES PER DAY
     Route: 048
     Dates: start: 2006
  2. ONDANSETRON [Suspect]
     Indication: VOMITING
     Dates: start: 2012
  3. PTU [Concomitant]

REACTIONS (1)
  - Exposure during pregnancy [Unknown]
